FAERS Safety Report 14766395 (Version 1)
Quarter: 2018Q2

REPORT INFORMATION
  Report Type: Spontaneous
  Country: FR (occurrence: FR)
  Receive Date: 20180416
  Receipt Date: 20180416
  Transmission Date: 20180711
  Serious: Yes (Hospitalization)
  Sender: FDA-Public Use
  Company Number: FR-ANIPHARMA-2018-FR-000034

PATIENT
  Age: 76 Year
  Sex: Female
  Weight: 57 kg

DRUGS (6)
  1. ANASTROZOLE. [Suspect]
     Active Substance: ANASTROZOLE
     Dosage: 1 MG
     Route: 048
     Dates: start: 20171127
  2. DUROGESIC(FENTANYL [Suspect]
     Active Substance: FENTANYL
     Dates: start: 2017, end: 20171130
  3. SKENAN(MORPHINE SULFATE) [Concomitant]
     Dates: start: 20171130
  4. PALBOCICLIB(PALBOCICLIB) [Suspect]
     Active Substance: PALBOCICLIB
     Dosage: 125 MG UNK
     Route: 048
     Dates: start: 20171127, end: 20171130
  5. FEMARA [Suspect]
     Active Substance: LETROZOLE
     Route: 048
     Dates: start: 20171122
  6. ACTISKENAN(MORPHINE SULFATE) [Concomitant]
     Dates: start: 20171130

REACTIONS (3)
  - Confusional state [Unknown]
  - General physical health deterioration [Not Recovered/Not Resolved]
  - Hallucination [Unknown]

NARRATIVE: CASE EVENT DATE: 20171130
